FAERS Safety Report 5850660-3 (Version None)
Quarter: 2008Q3

REPORT INFORMATION
  Report Type: 
  Country: None (occurrence: None)
  Receive Date: 20080820
  Receipt Date: 20080812
  Transmission Date: 20090109
  Serious: Yes (Other)
  Sender: FDA-Public Use
  Company Number: US-BAYER-200813010BCC

PATIENT
  Age: 74 Year
  Sex: Male
  Weight: 77 kg

DRUGS (4)
  1. ALEVE (CAPLET) [Suspect]
     Indication: ARTHRALGIA
     Dosage: TOTAL DAILY DOSE: 200 MG  UNIT DOSE: 220 MG
     Route: 048
     Dates: start: 20080601, end: 20080707
  2. PRILOSEC [Concomitant]
  3. CENTRUM SILVER [Concomitant]
  4. BLOOD PRESSURE MEDICATION (NOS) [Concomitant]

REACTIONS (1)
  - OCULAR HYPERAEMIA [None]
